FAERS Safety Report 6051150-8 (Version None)
Quarter: 2009Q1

REPORT INFORMATION
  Report Type: 
  Country: None (occurrence: None)
  Receive Date: 20090126
  Receipt Date: 20000101
  Transmission Date: 20090719
  Serious: No
  Sender: FDA-Public Use
  Company Number: US-ABBOTT-08P-163-0449116-00

PATIENT

DRUGS (1)
  1. TRICOR [Suspect]
     Indication: DRUG USE FOR UNKNOWN INDICATION

REACTIONS (5)
  - BLOOD CREATINE PHOSPHOKINASE ABNORMAL [None]
  - CHILLS [None]
  - FATIGUE [None]
  - MALAISE [None]
  - MYALGIA [None]
